FAERS Safety Report 23800786 (Version 1)
Quarter: 2024Q2

REPORT INFORMATION
  Report Type: Report from Study
  Country: CN (occurrence: CN)
  Receive Date: 20240430
  Receipt Date: 20240430
  Transmission Date: 20240716
  Serious: Yes (Other)
  Sender: FDA-Public Use
  Company Number: CN-HUTCHMED LIMITED-HMP2024CN00913

PATIENT
  Age: 55 Year
  Sex: Male

DRUGS (1)
  1. FRUQUINTINIB [Suspect]
     Active Substance: FRUQUINTINIB
     Indication: Gastrointestinal carcinoma
     Dosage: 5 MILLIGRAM
     Route: 065
     Dates: start: 202401

REACTIONS (2)
  - Carcinoembryonic antigen increased [Unknown]
  - Asthenia [Unknown]
